FAERS Safety Report 9447523 (Version 4)
Quarter: 2013Q3

REPORT INFORMATION
  Report Type: Spontaneous
  Country: US (occurrence: US)
  Receive Date: 20130808
  Receipt Date: 20130919
  Transmission Date: 20140515
  Serious: No
  Sender: FDA-Public Use
  Company Number: US-PFIZER INC-2013216827

PATIENT
  Age: 4 Year
  Sex: Male
  Weight: 15.87 kg

DRUGS (5)
  1. RAPAMUNE [Suspect]
     Indication: PROPHYLAXIS AGAINST TRANSPLANT REJECTION
     Dosage: 2.4 ML, DAILY
     Route: 048
     Dates: start: 201111
  2. RAPAMUNE [Suspect]
     Dosage: UNK
  3. CYCLOSPORINE [Suspect]
     Indication: PROPHYLAXIS AGAINST TRANSPLANT REJECTION
     Dosage: UNK
  4. BACTRIM [Concomitant]
     Dosage: 6 ML, 2X/WEEK
  5. AZATHIOPRINE [Concomitant]
     Dosage: 3 ML, DAILY

REACTIONS (4)
  - Off label use [Unknown]
  - Product quality issue [Unknown]
  - Poor quality drug administered [Unknown]
  - Drug intolerance [Unknown]
